FAERS Safety Report 6720927-5 (Version None)
Quarter: 2010Q2

REPORT INFORMATION
  Report Type: 
  Country: None (occurrence: None)
  Receive Date: 20100512
  Receipt Date: 20100505
  Transmission Date: 20101027
  Serious: Yes (Other)
  Sender: FDA-Public Use
  Company Number: NZ-JNJFOC-20100105106

PATIENT
  Sex: Female

DRUGS (1)
  1. RISPERDAL CONSTA [Suspect]
     Indication: SCHIZOPHRENIA
     Route: 030

REACTIONS (4)
  - INJECTION SITE EXTRAVASATION [None]
  - INJECTION SITE NODULE [None]
  - PRODUCT QUALITY ISSUE [None]
  - UNDERDOSE [None]
